FAERS Safety Report 25974562 (Version 1)
Quarter: 2025Q4

REPORT INFORMATION
  Report Type: Spontaneous
  Country: US (occurrence: US)
  Receive Date: 20251029
  Receipt Date: 20251029
  Transmission Date: 20260117
  Serious: Yes (Other)
  Sender: QILU PHARMACEUTICAL
  Company Number: US-QILU PHARMACEUTICAL CO.LTD.-QLU-000275-2025

PATIENT
  Age: 24 Year
  Sex: Male

DRUGS (10)
  1. OLANZAPINE [Suspect]
     Active Substance: OLANZAPINE
     Indication: Psychotic disorder
     Dosage: 10 MG
     Route: 065
     Dates: start: 20200520, end: 20200602
  2. OLANZAPINE [Suspect]
     Active Substance: OLANZAPINE
     Dosage: 25 MG
     Route: 065
     Dates: start: 20200602, end: 20200702
  3. OLANZAPINE [Suspect]
     Active Substance: OLANZAPINE
     Dosage: 20 MG
     Route: 065
     Dates: start: 20200702, end: 20200731
  4. OLANZAPINE [Suspect]
     Active Substance: OLANZAPINE
     Dosage: 15 MG
     Route: 065
     Dates: start: 20200731, end: 20200814
  5. OLANZAPINE [Suspect]
     Active Substance: OLANZAPINE
     Dosage: 5 MG
     Route: 065
     Dates: start: 20200814, end: 20200831
  6. RISPERIDONE [Concomitant]
     Active Substance: RISPERIDONE
     Dosage: 1 MG
     Route: 065
  7. RISPERIDONE [Concomitant]
     Active Substance: RISPERIDONE
     Dosage: 2 MG
     Route: 065
  8. MIDODRINE [Concomitant]
     Active Substance: MIDODRINE
     Indication: Product used for unknown indication
     Dosage: UNKNOWN
     Route: 065
     Dates: start: 20200814
  9. FLUDROCORTISONE [Concomitant]
     Active Substance: FLUDROCORTISONE
     Indication: Product used for unknown indication
     Dosage: UNK
     Route: 065
     Dates: start: 20200814
  10. METHAMPHETAMINE [Concomitant]
     Active Substance: METHAMPHETAMINE
     Indication: Product used for unknown indication
     Dosage: UNK
     Route: 065

REACTIONS (1)
  - Syncope [Recovered/Resolved]

NARRATIVE: CASE EVENT DATE: 20200702
